FAERS Safety Report 9107279 (Version 2)
Quarter: 2013Q3

REPORT INFORMATION
  Report Type: Spontaneous
  Country: US (occurrence: US)
  Receive Date: 20130221
  Receipt Date: 20130722
  Transmission Date: 20140515
  Serious: No
  Sender: FDA-Public Use
  Company Number: US-009507513-1302USA008868

PATIENT
  Sex: Male

DRUGS (10)
  1. VICTRELIS [Suspect]
     Indication: HEPATITIS C
     Dosage: 800 MG, TID
     Dates: start: 201301
  2. VICTRELIS [Suspect]
     Dosage: 800 MG, TID
     Dates: start: 201301
  3. RIBAPAK [Suspect]
  4. PEGASYS [Suspect]
  5. VENLAFAXINE HYDROCHLORIDE [Concomitant]
  6. CENTRUM ULTRA MENS [Concomitant]
  7. LOTREL [Concomitant]
  8. ALEVE [Concomitant]
  9. ASPIRIN [Concomitant]
  10. GLUCOSAMINE [Concomitant]

REACTIONS (6)
  - Pain in jaw [Not Recovered/Not Resolved]
  - Nausea [Unknown]
  - Vision blurred [Unknown]
  - Asthenia [Unknown]
  - Joint swelling [Unknown]
  - Arthralgia [Unknown]
